FAERS Safety Report 18730273 (Version 1)
Quarter: 2021Q1

REPORT INFORMATION
  Report Type: Spontaneous
  Country: PL (occurrence: PL)
  Receive Date: 20210112
  Receipt Date: 20210112
  Transmission Date: 20210419
  Serious: Yes (Other)
  Sender: FDA-Public Use
  Company Number: PL-PFIZER INC-2021009145

PATIENT
  Age: 68 Year
  Sex: Female
  Weight: 70 kg

DRUGS (3)
  1. SUTENT [Suspect]
     Active Substance: SUNITINIB MALATE
     Indication: RENAL CELL CARCINOMA
     Dosage: DOSE: 50 MG PER DAY (COURSE 1)
     Route: 048
  2. SUTENT [Suspect]
     Active Substance: SUNITINIB MALATE
     Dosage: 25 MG PER DAY (COURSES 4?29)
  3. SUTENT [Suspect]
     Active Substance: SUNITINIB MALATE
     Dosage: 37.5 MG (COURSES 2?3)
     Route: 048

REACTIONS (18)
  - Neutropenia [Unknown]
  - Bradycardia [Unknown]
  - Thrombocytopenia [Unknown]
  - Fatigue [Unknown]
  - Hypothyroidism [Unknown]
  - Headache [Unknown]
  - Anaemia [Unknown]
  - Palmar-plantar erythrodysaesthesia syndrome [Unknown]
  - Weight decreased [Unknown]
  - Leukopenia [Unknown]
  - Hyperglycaemia [Unknown]
  - Skin infection [Unknown]
  - Insomnia [Unknown]
  - Chest pain [Unknown]
  - Blood pressure increased [Unknown]
  - Chronic kidney disease [Unknown]
  - Vomiting [Unknown]
  - Aspartate aminotransferase increased [Unknown]
